FAERS Safety Report 25715829 (Version 1)
Quarter: 2025Q3

REPORT INFORMATION
  Report Type: Spontaneous
  Country: US (occurrence: None)
  Receive Date: 20250821
  Receipt Date: 20250821
  Transmission Date: 20251021
  Serious: Yes (Other)
  Sender: FDA-CTU
  Company Number: None

PATIENT
  Age: 62 Year
  Sex: Female
  Weight: 57.15 kg

DRUGS (16)
  1. PROLIA [Suspect]
     Active Substance: DENOSUMAB
     Indication: Osteoporosis
  2. Claritin (allergies) [Concomitant]
  3. Multi vitamins D [Concomitant]
  4. Multi vitamins k [Concomitant]
  5. Multi vitamins E [Concomitant]
  6. MAGNESIUM [Concomitant]
     Active Substance: MAGNESIUM
  7. CALCIUM [Concomitant]
     Active Substance: CALCIUM
  8. C [Concomitant]
  9. B multivitamins [Concomitant]
  10. Slippery Elm Bark [Concomitant]
  11. Various PRo Biotics [Concomitant]
  12. Gut restore [Concomitant]
  13. Elderberry/Echinacea tea and capsule [Concomitant]
  14. HERBALS\TURMERIC [Concomitant]
     Active Substance: HERBALS\TURMERIC
  15. UNSPECIFIED INGREDIENT [Concomitant]
     Active Substance: UNSPECIFIED INGREDIENT
  16. Protien powder; chicken broth and collagen [Concomitant]

REACTIONS (4)
  - Product communication issue [None]
  - Tooth fracture [None]
  - Osteonecrosis of jaw [None]
  - Emotional disorder [None]

NARRATIVE: CASE EVENT DATE: 20250818
